FAERS Safety Report 21671833 (Version 1)
Quarter: 2022Q4

REPORT INFORMATION
  Report Type: Other
  Country: US (occurrence: None)
  Receive Date: 20221202
  Receipt Date: 20221202
  Transmission Date: 20230113
  Serious: Yes (Other)
  Sender: FDA-Public Use
  Company Number: US-ROCHE-3227738

PATIENT
  Age: 67 Year
  Sex: Female
  Weight: 75.364 kg

DRUGS (3)
  1. XOLAIR [Suspect]
     Active Substance: OMALIZUMAB
     Indication: Idiopathic urticaria
     Dosage: YES
     Route: 058
  2. XOLAIR [Suspect]
     Active Substance: OMALIZUMAB
  3. XOLAIR [Suspect]
     Active Substance: OMALIZUMAB

REACTIONS (12)
  - Colon cancer [Recovered/Resolved]
  - Anaphylactic shock [Unknown]
  - Wound [Recovered/Resolved]
  - Cholelithiasis [Not Recovered/Not Resolved]
  - Blister [Unknown]
  - Neoplasm [Unknown]
  - Scar [Unknown]
  - Back pain [Unknown]
  - Memory impairment [Unknown]
  - Muscle strain [Unknown]
  - Cognitive disorder [Unknown]
  - Radiation injury [Unknown]

NARRATIVE: CASE EVENT DATE: 20211227
